FAERS Safety Report 19275726 (Version 1)
Quarter: 2021Q2

REPORT INFORMATION
  Report Type: Spontaneous
  Country: CA (occurrence: CA)
  Receive Date: 20210519
  Receipt Date: 20210519
  Transmission Date: 20210717
  Serious: Yes (Other)
  Sender: FDA-Public Use
  Company Number: CA-ALLERGAN-2118529US

PATIENT
  Sex: Female

DRUGS (58)
  1. MEMANTINE HCL ? BP [Suspect]
     Active Substance: MEMANTINE
     Indication: COMPLEX REGIONAL PAIN SYNDROME
     Route: 065
  2. GABAPENTIN. [Suspect]
     Active Substance: GABAPENTIN
     Indication: COMPLEX REGIONAL PAIN SYNDROME
     Route: 065
  3. LIDOCAINE. [Suspect]
     Active Substance: LIDOCAINE
     Indication: COMPLEX REGIONAL PAIN SYNDROME
     Route: 065
  4. METHADONE [Suspect]
     Active Substance: METHADONE HYDROCHLORIDE
     Indication: COMPLEX REGIONAL PAIN SYNDROME
     Route: 065
  5. OXYCODONE [Suspect]
     Active Substance: OXYCODONE
     Dosage: 10 MG, Q8HR
     Route: 065
  6. TOPIRAMATE. [Suspect]
     Active Substance: TOPIRAMATE
     Indication: COMPLEX REGIONAL PAIN SYNDROME
     Route: 065
  7. AMITRIPTYLINE HYDROCHLORIDE. [Suspect]
     Active Substance: AMITRIPTYLINE HYDROCHLORIDE
     Dosage: 150 MG
     Route: 065
  8. IBUPROFEN. [Suspect]
     Active Substance: IBUPROFEN
     Indication: COMPLEX REGIONAL PAIN SYNDROME
     Route: 065
  9. KETAMINE [Suspect]
     Active Substance: KETAMINE
     Indication: COMPLEX REGIONAL PAIN SYNDROME
     Dosage: 25 MG, BID
     Route: 048
  10. OXYCODONE [Suspect]
     Active Substance: OXYCODONE
     Dosage: 50 MG
  11. VENLAFAXINE [Suspect]
     Active Substance: VENLAFAXINE HYDROCHLORIDE
     Indication: COMPLEX REGIONAL PAIN SYNDROME
     Route: 065
  12. EMLA [Suspect]
     Active Substance: LIDOCAINE\PRILOCAINE
     Indication: PRODUCT USED FOR UNKNOWN INDICATION
     Route: 065
  13. MORPHINE SULFATE UNK [Suspect]
     Active Substance: MORPHINE SULFATE
     Indication: COMPLEX REGIONAL PAIN SYNDROME
     Route: 065
  14. CARBAMAZEPINE. [Suspect]
     Active Substance: CARBAMAZEPINE
     Indication: COMPLEX REGIONAL PAIN SYNDROME
     Route: 065
  15. LIDOCAINE INFUSION [Suspect]
     Active Substance: LIDOCAINE HYDROCHLORIDE
     Indication: COMPLEX REGIONAL PAIN SYNDROME
     Route: 065
  16. NORTRIPTYLINE [Suspect]
     Active Substance: NORTRIPTYLINE
     Indication: COMPLEX REGIONAL PAIN SYNDROME
     Route: 065
  17. OXYCODONE [Suspect]
     Active Substance: OXYCODONE
     Dosage: 60 MG, BID
     Route: 065
  18. APO?TRAMADOL [Suspect]
     Active Substance: TRAMADOL
     Indication: COMPLEX REGIONAL PAIN SYNDROME
     Route: 065
  19. BUPROPION. [Suspect]
     Active Substance: BUPROPION
     Indication: COMPLEX REGIONAL PAIN SYNDROME
     Route: 065
  20. CODEINE [Suspect]
     Active Substance: CODEINE
     Indication: COMPLEX REGIONAL PAIN SYNDROME
     Route: 065
  21. DESIPRAMINE [Suspect]
     Active Substance: DESIPRAMINE
     Indication: COMPLEX REGIONAL PAIN SYNDROME
     Route: 065
  22. FENTANYL. [Suspect]
     Active Substance: FENTANYL
     Dosage: 1 DF, TID
     Route: 062
  23. LIDOCAINE/PRILOCAINE HYDROCHLORIDE [Suspect]
     Active Substance: LIDOCAINE\PRILOCAINE HYDROCHLORIDE
     Indication: COMPLEX REGIONAL PAIN SYNDROME
     Route: 065
  24. MEXILETINE [Suspect]
     Active Substance: MEXILETINE
     Indication: COMPLEX REGIONAL PAIN SYNDROME
     Route: 065
  25. NAPROXEN. [Suspect]
     Active Substance: NAPROXEN
     Indication: COMPLEX REGIONAL PAIN SYNDROME
     Route: 065
  26. OXYCODONE [Suspect]
     Active Substance: OXYCODONE
     Dosage: 80 MG, Q8HR
     Route: 065
  27. OXYCODONE [Suspect]
     Active Substance: OXYCODONE
     Dosage: 120 MG, Q12H
     Route: 065
  28. CITALOPRAM HYDROBROMIDE ? BP [Suspect]
     Active Substance: CITALOPRAM HYDROBROMIDE
     Indication: COMPLEX REGIONAL PAIN SYNDROME
     Route: 065
  29. AMITRIPTYLINE HYDROCHLORIDE. [Suspect]
     Active Substance: AMITRIPTYLINE HYDROCHLORIDE
     Dosage: 50 MG
     Route: 065
  30. CAPSICUM OLEORESIN (PEPPER SPRAY) [Suspect]
     Active Substance: CAPSICUM OLEORESIN
     Indication: COMPLEX REGIONAL PAIN SYNDROME
     Route: 065
  31. CLONIDINE. [Suspect]
     Active Substance: CLONIDINE
     Indication: COMPLEX REGIONAL PAIN SYNDROME
     Route: 065
  32. DEXTROMETHORPHAN [Suspect]
     Active Substance: DEXTROMETHORPHAN
     Indication: COMPLEX REGIONAL PAIN SYNDROME
     Route: 065
  33. LIDOCAINE. [Suspect]
     Active Substance: LIDOCAINE
     Indication: COMPLEX REGIONAL PAIN SYNDROME
     Route: 065
  34. ACETAMINOPHEN. [Suspect]
     Active Substance: ACETAMINOPHEN
     Indication: COMPLEX REGIONAL PAIN SYNDROME
     Route: 065
  35. CITRUS AURANTIUM [Suspect]
     Active Substance: HERBALS
     Indication: COMPLEX REGIONAL PAIN SYNDROME
     Route: 065
  36. FENTANYL. [Suspect]
     Active Substance: FENTANYL
     Indication: COMPLEX REGIONAL PAIN SYNDROME
     Dosage: UNK
     Route: 062
  37. HYDROMORPHONE [Suspect]
     Active Substance: HYDROMORPHONE
     Indication: COMPLEX REGIONAL PAIN SYNDROME
     Route: 065
  38. KETAMINE [Suspect]
     Active Substance: KETAMINE
     Dosage: UNK
     Route: 048
  39. LAVENDER OIL [Suspect]
     Active Substance: LAVENDER OIL
     Indication: COMPLEX REGIONAL PAIN SYNDROME
     Route: 065
  40. PREGABALIN. [Suspect]
     Active Substance: PREGABALIN
     Indication: COMPLEX REGIONAL PAIN SYNDROME
     Route: 065
  41. PREGABALIN. [Suspect]
     Active Substance: PREGABALIN
     Dosage: 150 MG
     Route: 065
  42. RAVENSARA AROMATICA [Suspect]
     Active Substance: HERBALS
     Indication: COMPLEX REGIONAL PAIN SYNDROME
     Route: 065
  43. ROSEMARY OIL [Suspect]
     Active Substance: ROSEMARY OIL
     Indication: COMPLEX REGIONAL PAIN SYNDROME
     Route: 065
  44. DICLOFENAC UNK [Suspect]
     Active Substance: DICLOFENAC SODIUM
     Indication: COMPLEX REGIONAL PAIN SYNDROME
     Route: 065
  45. AMITRIPTYLINE HYDROCHLORIDE. [Suspect]
     Active Substance: AMITRIPTYLINE HYDROCHLORIDE
     Indication: COMPLEX REGIONAL PAIN SYNDROME
     Route: 065
  46. ASPIRIN. [Suspect]
     Active Substance: ASPIRIN
     Indication: COMPLEX REGIONAL PAIN SYNDROME
     Route: 065
  47. CELECOXIB. [Suspect]
     Active Substance: CELECOXIB
     Indication: COMPLEX REGIONAL PAIN SYNDROME
     Route: 065
  48. EUCALYPTUS OIL [Suspect]
     Active Substance: EUCALYPTUS OIL
     Indication: COMPLEX REGIONAL PAIN SYNDROME
     Route: 065
  49. KETAMINE [Suspect]
     Active Substance: KETAMINE
     Dosage: UNK
     Route: 042
  50. LIDOCAINE. [Suspect]
     Active Substance: LIDOCAINE
     Indication: COMPLEX REGIONAL PAIN SYNDROME
     Route: 065
  51. NORTRIPTYLINE [Suspect]
     Active Substance: NORTRIPTYLINE
     Indication: COMPLEX REGIONAL PAIN SYNDROME
     Route: 065
  52. OXCARBAZEPINE. [Suspect]
     Active Substance: OXCARBAZEPINE
     Indication: COMPLEX REGIONAL PAIN SYNDROME
     Route: 065
  53. OXYCODONE [Suspect]
     Active Substance: OXYCODONE
     Indication: COMPLEX REGIONAL PAIN SYNDROME
     Route: 065
  54. PREGABALIN. [Suspect]
     Active Substance: PREGABALIN
     Dosage: 50 MG, BID
     Route: 065
  55. PREGABALIN. [Suspect]
     Active Substance: PREGABALIN
     Indication: COMPLEX REGIONAL PAIN SYNDROME
     Route: 065
  56. CAPSAICIN. [Suspect]
     Active Substance: CAPSAICIN
     Indication: COMPLEX REGIONAL PAIN SYNDROME
     Route: 065
  57. KETOROLAC [Suspect]
     Active Substance: KETOROLAC TROMETHAMINE
     Indication: COMPLEX REGIONAL PAIN SYNDROME
     Route: 065
  58. TEVA?DULOXETINE [Suspect]
     Active Substance: DULOXETINE
     Indication: COMPLEX REGIONAL PAIN SYNDROME
     Route: 065

REACTIONS (4)
  - Product use in unapproved indication [Unknown]
  - Therapy non-responder [Unknown]
  - Immune thrombocytopenia [Unknown]
  - Weight increased [Unknown]
